FAERS Safety Report 8368818 (Version 5)
Quarter: 2013Q2

REPORT INFORMATION
  Report Type: Report from Study
  Country: FR (occurrence: FR)
  Receive Date: 20120131
  Receipt Date: 20130506
  Transmission Date: 20140414
  Serious: Yes (Hospitalization)
  Sender: FDA-Public Use
  Company Number: FR-BIOGENIDEC-2012BI002787

PATIENT
  Age: 52 Year
  Sex: Female

DRUGS (9)
  1. TYSABRI [Suspect]
     Indication: MULTIPLE SCLEROSIS
     Route: 042
     Dates: start: 20080602, end: 20110420
  2. IMOVANE [Concomitant]
  3. SERESTA [Concomitant]
  4. MIRTAZAPINE [Concomitant]
  5. EDUCTYL [Concomitant]
  6. PERFALGAN [Concomitant]
     Route: 042
  7. NACL 0.9% [Concomitant]
  8. SOLUMEDROL [Concomitant]
     Indication: MULTIPLE SCLEROSIS
     Dates: start: 201105, end: 201105
  9. SOLUMEDROL [Concomitant]
     Indication: MULTIPLE SCLEROSIS
     Dates: start: 201106, end: 201106

REACTIONS (1)
  - Anal abscess [Recovered/Resolved]
